FAERS Safety Report 22354414 (Version 1)
Quarter: 2023Q2

REPORT INFORMATION
  Report Type: Report from Study
  Country: GB (occurrence: GB)
  Receive Date: 20230523
  Receipt Date: 20230523
  Transmission Date: 20230722
  Serious: Yes (Hospitalization)
  Sender: FDA-Public Use
  Company Number: None

PATIENT
  Age: 69 Year
  Sex: Female

DRUGS (18)
  1. DOCETAXEL [Suspect]
     Active Substance: DOCETAXEL
     Indication: Breast cancer metastatic
     Dosage: 100 MG
     Route: 042
     Dates: start: 20160527
  2. PERTUZUMAB [Suspect]
     Active Substance: PERTUZUMAB
     Indication: Breast cancer metastatic
     Dosage: 420 MG, Q3W
     Route: 042
     Dates: start: 20160520, end: 20170620
  3. TRASTUZUMAB [Suspect]
     Active Substance: TRASTUZUMAB
     Indication: Breast cancer metastatic
     Dosage: 600 MG, Q3W
     Route: 058
     Dates: start: 20160520, end: 20170620
  4. ADO-TRASTUZUMAB EMTANSINE [Suspect]
     Active Substance: ADO-TRASTUZUMAB EMTANSINE
     Indication: Breast cancer metastatic
     Dosage: 1000 MG, Q3W
     Route: 042
     Dates: start: 20170725, end: 20171016
  5. CARBOXYMETHYLCELLULOSE [Concomitant]
     Active Substance: CARBOXYMETHYLCELLULOSE
     Dates: start: 20180712
  6. CETIRIZINE [Concomitant]
     Active Substance: CETIRIZINE HYDROCHLORIDE
     Route: 048
     Dates: start: 20160617
  7. CHLORPHENIRAMINE [Concomitant]
     Active Substance: CHLORPHENIRAMINE
     Route: 048
  8. CLOTRIMAZOLE [Concomitant]
     Active Substance: CLOTRIMAZOLE
     Indication: Candida infection
     Route: 061
     Dates: start: 20170208
  9. CODEINE PHOSPHATE [Concomitant]
     Active Substance: CODEINE PHOSPHATE
     Dates: start: 20171130
  10. CHOLECALCIFEROL [Concomitant]
     Active Substance: CHOLECALCIFEROL
     Dates: start: 20180712
  11. FLUCONAZOLE [Concomitant]
     Active Substance: FLUCONAZOLE
  12. HYDROCORTISONE [Concomitant]
     Active Substance: HYDROCORTISONE
     Route: 061
     Dates: start: 20160603, end: 20161010
  13. HYPROMELLOSES [Concomitant]
     Active Substance: HYPROMELLOSES
     Dates: start: 20180713
  14. METOCLOPRAMIDE [Concomitant]
     Active Substance: METOCLOPRAMIDE
     Route: 048
     Dates: start: 20160529
  15. MORPHINE [Concomitant]
     Active Substance: MORPHINE
     Dates: start: 20180712, end: 20180718
  16. OMEPRAZOLE [Concomitant]
     Active Substance: OMEPRAZOLE
     Route: 048
     Dates: start: 20160617
  17. OMEPRAZOLE [Concomitant]
     Active Substance: OMEPRAZOLE
  18. HYDROCORTISONE [Concomitant]
     Active Substance: HYDROCORTISONE
     Route: 061
     Dates: start: 20170123

REACTIONS (9)
  - Muscle spasms [Unknown]
  - Pruritus [Recovered/Resolved]
  - Onychoclasis [Recovered/Resolved]
  - Pain in extremity [Unknown]
  - Pleural effusion [Recovered/Resolved]
  - Pneumonitis [Recovered/Resolved]
  - Ejection fraction decreased [Not Recovered/Not Resolved]
  - Rhinitis [Not Recovered/Not Resolved]
  - Cough [Unknown]

NARRATIVE: CASE EVENT DATE: 20170123
